FAERS Safety Report 12535781 (Version 1)
Quarter: 2016Q3

REPORT INFORMATION
  Report Type: Spontaneous
  Country: None (occurrence: None)
  Receive Date: 20160706
  Receipt Date: 20160706
  Transmission Date: 20161109
  Serious: No
  Sender: FDA-Public Use
  Company Number: None

PATIENT
  Age: 63 Year
  Sex: Male

DRUGS (1)
  1. ZYTIGA [Suspect]
     Active Substance: ABIRATERONE ACETATE
     Indication: PROSTATE CANCER

REACTIONS (4)
  - Glossodynia [None]
  - Decreased appetite [None]
  - Fatigue [None]
  - Retching [None]

NARRATIVE: CASE EVENT DATE: 201606
